FAERS Safety Report 13502298 (Version 2)
Quarter: 2017Q4

REPORT INFORMATION
  Report Type: Report from Study
  Country: None (occurrence: BR)
  Receive Date: 20170502
  Receipt Date: 20171128
  Transmission Date: 20180320
  Serious: Yes (Hospitalization, Other)
  Sender: FDA-Public Use
  Company Number: BR-ABBVIE-17K-020-1958965-00

PATIENT
  Sex: Female
  Weight: 57 kg

DRUGS (6)
  1. PROSSO [Concomitant]
     Indication: ARTHRITIS
     Route: 048
     Dates: start: 2015
  2. PARACETAMOL [Concomitant]
     Active Substance: ACETAMINOPHEN
     Indication: ARTHRITIS
     Route: 048
     Dates: start: 2007
  3. HUMIRA [Suspect]
     Active Substance: ADALIMUMAB
     Indication: RHEUMATOID ARTHRITIS
     Route: 058
     Dates: start: 20081201
  4. MELOXICAM. [Concomitant]
     Active Substance: MELOXICAM
     Indication: ARTHRITIS
     Route: 048
     Dates: start: 2007
  5. RANITIDINE. [Concomitant]
     Active Substance: RANITIDINE
     Indication: ARTHRITIS
     Route: 048
     Dates: start: 2007
  6. PREDNISONE. [Concomitant]
     Active Substance: PREDNISONE
     Indication: ARTHRITIS
     Route: 048
     Dates: start: 2007

REACTIONS (15)
  - Peripheral swelling [Not Recovered/Not Resolved]
  - Gait disturbance [Unknown]
  - Therapeutic response shortened [Unknown]
  - Renal disorder [Unknown]
  - Musculoskeletal stiffness [Unknown]
  - Gait inability [Unknown]
  - Unevaluable event [Unknown]
  - Alopecia [Unknown]
  - Device loosening [Not Recovered/Not Resolved]
  - Atrophy [Not Recovered/Not Resolved]
  - Sciatic nerve neuropathy [Unknown]
  - Malaise [Unknown]
  - Arthralgia [Not Recovered/Not Resolved]
  - Rash macular [Unknown]
  - Infection [Unknown]

NARRATIVE: CASE EVENT DATE: 2017
